FAERS Safety Report 9154200 (Version 1)
Quarter: 2013Q1

REPORT INFORMATION
  Report Type: Spontaneous
  Country: US (occurrence: US)
  Receive Date: 20130311
  Receipt Date: 20130311
  Transmission Date: 20140127
  Serious: Yes (Hospitalization)
  Sender: FDA-Public Use
  Company Number: US-PFIZER INC-2013079936

PATIENT
  Sex: Female

DRUGS (2)
  1. CELEBREX [Suspect]
     Dosage: 400 MG, UNK
  2. ASPIRIN [Concomitant]
     Dosage: UNK

REACTIONS (2)
  - Pharyngeal oedema [Unknown]
  - Rash generalised [Unknown]
